FAERS Safety Report 6994320-4 (Version None)
Quarter: 2010Q3

REPORT INFORMATION
  Report Type: 
  Country: None (occurrence: None)
  Receive Date: 20100917
  Receipt Date: 20100910
  Transmission Date: 20110219
  Serious: Yes (Hospitalization)
  Sender: FDA-Public Use
  Company Number: PHHO2010AU13725

PATIENT
  Sex: Female
  Weight: 55 kg

DRUGS (1)
  1. CERTICAN [Suspect]
     Indication: LUNG TRANSPLANT
     Dosage: 0.5MG/DAY
     Route: 048
     Dates: start: 20080701, end: 20100910

REACTIONS (3)
  - DRUG TOXICITY [None]
  - HEADACHE [None]
  - NAUSEA [None]
